FAERS Safety Report 25064868 (Version 1)
Quarter: 2025Q1

REPORT INFORMATION
  Report Type: Spontaneous
  Country: US (occurrence: None)
  Receive Date: 20250311
  Receipt Date: 20250311
  Transmission Date: 20250408
  Serious: No
  Sender: FDA-CTU
  Company Number: None

PATIENT
  Age: 61 Year
  Sex: Male
  Weight: 88.65 kg

DRUGS (11)
  1. DOXYCYCLINE HYCLATE [Suspect]
     Active Substance: DOXYCYCLINE HYCLATE
     Indication: Lyme disease
     Dosage: 42 CAPSU;LES EVEY 12 HOURS ORAL ?
     Route: 048
     Dates: start: 20250306, end: 20250309
  2. ZOLOFT [Concomitant]
     Active Substance: SERTRALINE HYDROCHLORIDE
  3. IRBESARTAN [Concomitant]
     Active Substance: IRBESARTAN
  4. PROBIOTICS NOS [Concomitant]
     Active Substance: PROBIOTICS NOS
  5. VITAMINS [Concomitant]
     Active Substance: VITAMINS
  6. FISH [Concomitant]
     Active Substance: FISH
  7. OIL [Concomitant]
     Active Substance: MINERAL OIL
  8. VITAMIN D3 [Concomitant]
     Active Substance: CHOLECALCIFEROL
  9. B12 [Concomitant]
  10. MUSHROOM BLEND [Concomitant]
  11. MAGNESIUM [Concomitant]
     Active Substance: MAGNESIUM

REACTIONS (6)
  - Back pain [None]
  - Headache [None]
  - Head discomfort [None]
  - Eye pain [None]
  - Oropharyngeal pain [None]
  - Upper respiratory tract infection [None]

NARRATIVE: CASE EVENT DATE: 20250307
